FAERS Safety Report 6198431-5 (Version None)
Quarter: 2009Q2

REPORT INFORMATION
  Report Type: 
  Country: None (occurrence: None)
  Receive Date: 20090519
  Receipt Date: 20090513
  Transmission Date: 20091009
  Serious: Yes (Hospitalization)
  Sender: FDA-Public Use
  Company Number: CHPA2009US11527

PATIENT
  Sex: Male

DRUGS (2)
  1. TRIAMINIC NIGHT TIME COLD + COUGH (NCH)(DIPHENHYDRAMINE, PHENYLEPHRINE [Suspect]
     Indication: COUGH
     Dosage: 1 DF, QD, ORAL
     Route: 048
     Dates: start: 20080101, end: 20080101
  2. TRIAMINIC NIGHT TIME COLD + COUGH (NCH)(DIPHENHYDRAMINE, PHENYLEPHRINE [Suspect]
     Indication: NASOPHARYNGITIS
     Dosage: 1 DF, QD, ORAL
     Route: 048
     Dates: start: 20080101, end: 20080101

REACTIONS (8)
  - COUGH [None]
  - HYPERSENSITIVITY [None]
  - INCORRECT DOSE ADMINISTERED [None]
  - OVERDOSE [None]
  - PANIC ATTACK [None]
  - PHARYNGEAL OEDEMA [None]
  - SNEEZING [None]
  - VOMITING [None]
